FAERS Safety Report 17465424 (Version 1)
Quarter: 2020Q1

REPORT INFORMATION
  Report Type: Report from Study
  Country: CO (occurrence: CO)
  Receive Date: 20200227
  Receipt Date: 20200227
  Transmission Date: 20200409
  Serious: Yes (Hospitalization)
  Sender: FDA-Public Use
  Company Number: CO-ROCHE-2517528

PATIENT
  Sex: Male

DRUGS (1)
  1. MYCOPHENOLATE MOFETIL. [Suspect]
     Active Substance: MYCOPHENOLATE MOFETIL
     Indication: TRANSPLANT
     Dosage: TWO IN THE MORNING AND TWO AT NIGHT
     Route: 048

REACTIONS (4)
  - Immunosuppression [Unknown]
  - Oral mucosal blistering [Unknown]
  - Platelet count decreased [Unknown]
  - Lip blister [Unknown]
